FAERS Safety Report 4273504-2 (Version None)
Quarter: 2004Q1

REPORT INFORMATION
  Report Type: 
  Country: None (occurrence: None)
  Receive Date: 20040119
  Receipt Date: 20040109
  Transmission Date: 20041129
  Serious: Yes (Hospitalization)
  Sender: FDA-Public Use
  Company Number: FR-GLAXOSMITHKLINE-B0319349A

PATIENT
  Age: 76 Year
  Sex: Female
  Weight: 70 kg

DRUGS (6)
  1. CLAMOXYL [Suspect]
     Indication: PURULENT DISCHARGE
     Dosage: 1U SINGLE DOSE
     Route: 048
     Dates: start: 20031210, end: 20031210
  2. AUGMENTIN [Suspect]
     Dates: start: 20031001
  3. PYOSTACINE [Concomitant]
     Indication: PURULENT DISCHARGE
     Dosage: 1UNIT SINGLE DOSE
     Route: 048
     Dates: start: 20031210, end: 20031210
  4. HALDOL [Concomitant]
     Dosage: 10DROP THREE TIMES PER DAY
     Route: 048
  5. DI ANTALVIC [Concomitant]
     Dosage: 2UNIT THREE TIMES PER DAY
     Route: 048
     Dates: end: 20031210
  6. FORLAX [Concomitant]
     Dosage: 1UNIT PER DAY
     Route: 048

REACTIONS (14)
  - ALANINE AMINOTRANSFERASE INCREASED [None]
  - ASPARTATE AMINOTRANSFERASE INCREASED [None]
  - BLOOD ALKALINE PHOSPHATASE INCREASED [None]
  - BLOOD PRESSURE INCREASED [None]
  - BLOOD UREA INCREASED [None]
  - GAMMA-GLUTAMYLTRANSFERASE INCREASED [None]
  - GENERALISED ERYTHEMA [None]
  - HEPATIC ENZYME INCREASED [None]
  - HYPOTENSION [None]
  - PRURITUS [None]
  - PURULENT DISCHARGE [None]
  - RASH [None]
  - RASH ERYTHEMATOUS [None]
  - SKIN INFECTION [None]
